FAERS Safety Report 4497963-5 (Version None)
Quarter: 2004Q4

REPORT INFORMATION
  Report Type: 
  Country: None (occurrence: None)
  Receive Date: 20041105
  Receipt Date: 20041025
  Transmission Date: 20050328
  Serious: Yes (Hospitalization)
  Sender: FDA-Public Use
  Company Number: K200401676

PATIENT
  Age: 75 Year
  Sex: Female

DRUGS (12)
  1. ALTACE [Suspect]
     Dosage: UNK
     Route: 065
     Dates: end: 20040801
  2. ALTACE [Suspect]
     Dosage: UNK
     Route: 065
     Dates: start: 20040801, end: 20040901
  3. ALTACE [Suspect]
     Dosage: UNK
     Route: 065
     Dates: start: 20040927
  4. ECOTRIN (ACETYLSALICYLIC ACID) TABLET [Suspect]
     Indication: PROPHYLAXIS
     Dosage: ORAL
     Route: 048
     Dates: start: 20020101, end: 20040801
  5. ECOTRIN (ACETYLSALICYLIC ACID) TABLET [Suspect]
     Indication: PROPHYLAXIS
     Dosage: ORAL
     Route: 048
     Dates: start: 20040801, end: 20040901
  6. ECOTRIN (ACETYLSALICYLIC ACID) TABLET [Suspect]
     Indication: PROPHYLAXIS
     Dosage: ORAL
     Route: 048
     Dates: start: 20040927
  7. CEFTIN [Suspect]
     Dosage: UNK
     Route: 065
     Dates: start: 20040901, end: 20040901
  8. PREVACID [Concomitant]
  9. ARTHROTEC [Concomitant]
  10. LORAZEPAM [Concomitant]
  11. HUMULIN N [Concomitant]
  12. HUMULIN R [Concomitant]

REACTIONS (14)
  - ANGINA PECTORIS [None]
  - BLEEDING TIME PROLONGED [None]
  - CHROMATURIA [None]
  - CORONARY ARTERY OCCLUSION [None]
  - DIARRHOEA [None]
  - DRUG HYPERSENSITIVITY [None]
  - FAECES DISCOLOURED [None]
  - FEELING ABNORMAL [None]
  - HAEMOPTYSIS [None]
  - LOSS OF CONSCIOUSNESS [None]
  - OESOPHAGEAL PAIN [None]
  - PNEUMONIA [None]
  - THROAT IRRITATION [None]
  - VOMITING [None]
